FAERS Safety Report 14533169 (Version 1)
Quarter: 2018Q1

REPORT INFORMATION
  Report Type: Report from Study
  Country: BR (occurrence: BR)
  Receive Date: 20180215
  Receipt Date: 20180215
  Transmission Date: 20180509
  Serious: Yes (Other)
  Sender: FDA-Public Use
  Company Number: BR-ROCHE-2025601

PATIENT
  Sex: Female
  Weight: 58 kg

DRUGS (6)
  1. XOLAIR [Suspect]
     Active Substance: OMALIZUMAB
     Indication: CHRONIC SPONTANEOUS URTICARIA
     Route: 058
  2. XOLAIR [Suspect]
     Active Substance: OMALIZUMAB
     Route: 058
     Dates: start: 20170831
  3. ACETYLCYSTEINE. [Concomitant]
     Active Substance: ACETYLCYSTEINE
     Indication: RHINITIS ALLERGIC
     Dosage: 2 YEARS AGO
     Route: 048
  4. DONAREN [Concomitant]
     Active Substance: TRAZODONE HYDROCHLORIDE
     Indication: INSOMNIA
     Dosage: 1 YEAR AGO
     Route: 048
  5. CETIRIZINE [Concomitant]
     Active Substance: CETIRIZINE HYDROCHLORIDE
     Indication: URTICARIA
     Dosage: 1 AND HALF YEAR AGO
     Route: 048
  6. XOLAIR [Suspect]
     Active Substance: OMALIZUMAB
     Route: 058
     Dates: start: 20171005

REACTIONS (13)
  - Weight increased [Not Recovered/Not Resolved]
  - Hypoaesthesia [Recovered/Resolved]
  - Respiratory tract congestion [Recovering/Resolving]
  - Application site pain [Unknown]
  - Abdominal distension [Not Recovered/Not Resolved]
  - Catarrh [Not Recovered/Not Resolved]
  - Helicobacter infection [Unknown]
  - Abdominal pain upper [Not Recovered/Not Resolved]
  - Immunosuppression [Unknown]
  - Ulcer [Not Recovered/Not Resolved]
  - Secretion discharge [Recovering/Resolving]
  - Helminthic infection [Unknown]
  - Blood iron decreased [Unknown]
